FAERS Safety Report 5834986-5 (Version None)
Quarter: 2008Q3

REPORT INFORMATION
  Report Type: 
  Country: None (occurrence: None)
  Receive Date: 20080806
  Receipt Date: 20080516
  Transmission Date: 20090109
  Serious: No
  Sender: FDA-Public Use
  Company Number: US-BAYER-200823367NA

PATIENT
  Sex: Female

DRUGS (1)
  1. CIPRO [Suspect]
     Indication: INFECTION
     Dosage: UNIT DOSE: 500 MG
     Route: 048

REACTIONS (4)
  - INFLUENZA [None]
  - NAUSEA [None]
  - POLLAKIURIA [None]
  - VOMITING [None]
